FAERS Safety Report 4815735-6 (Version None)
Quarter: 2005Q4

REPORT INFORMATION
  Report Type: 
  Country: None (occurrence: None)
  Receive Date: 20051031
  Receipt Date: 20050330
  Transmission Date: 20060501
  Serious: Yes (Death)
  Sender: FDA-Public Use
  Company Number: GB-GLAXOSMITHKLINE-B0376684A

PATIENT
  Age: 77 Year
  Sex: Male
  Weight: 80 kg

DRUGS (4)
  1. NIQUITIN CQ LOZENGE [Suspect]
     Indication: SMOKING CESSATION THERAPY
     Route: 002
     Dates: start: 20041206
  2. ASPIRIN [Concomitant]
     Route: 048
  3. GLYCERYL TRINITRATE [Concomitant]
     Route: 060
     Dates: start: 20040728
  4. SODIUM BICARBONATE [Concomitant]
     Dosage: 500MG THREE TIMES PER DAY
     Dates: start: 19990101

REACTIONS (11)
  - AORTIC ARTERIOSCLEROSIS [None]
  - ARTERIOSCLEROSIS CORONARY ARTERY [None]
  - BRONCHIAL OBSTRUCTION [None]
  - CORONARY ARTERY OCCLUSION [None]
  - CORONARY ARTERY STENOSIS [None]
  - DILATATION VENTRICULAR [None]
  - LUNG HYPERINFLATION [None]
  - MYOCARDIAL ISCHAEMIA [None]
  - PULMONARY CONGESTION [None]
  - RENAL ARTERY STENOSIS [None]
  - VENTRICULAR HYPERTROPHY [None]
